FAERS Safety Report 17130447 (Version 3)
Quarter: 2019Q4

REPORT INFORMATION
  Report Type: Report from Study
  Country: None (occurrence: US)
  Receive Date: 20191209
  Receipt Date: 20191216
  Transmission Date: 20200122
  Serious: Yes (Other)
  Sender: FDA-Public Use
  Company Number: US-ABBVIE-19K-163-3134242-00

PATIENT
  Sex: Female

DRUGS (4)
  1. IMBRUVICA [Suspect]
     Active Substance: IBRUTINIB
     Indication: CHRONIC LYMPHOCYTIC LEUKAEMIA
     Dosage: 420 MG, QD
     Route: 048
     Dates: start: 20180628, end: 2018
  2. IMBRUVICA [Suspect]
     Active Substance: IBRUTINIB
     Dosage: 420 MG, QD
     Route: 048
     Dates: start: 201809, end: 201809
  3. IMBRUVICA [Suspect]
     Active Substance: IBRUTINIB
     Dosage: 420 MG, QD
     Route: 048
     Dates: start: 20180910
  4. IMBRUVICA [Suspect]
     Active Substance: IBRUTINIB
     Dosage: 420 MG, QD
     Route: 048
     Dates: start: 20190628

REACTIONS (15)
  - Petechiae [Not Recovered/Not Resolved]
  - Onychomycosis [Unknown]
  - Cataract [Unknown]
  - Nail disorder [Unknown]
  - Abdominal pain lower [Unknown]
  - Laboratory test abnormal [Not Recovered/Not Resolved]
  - Gastrooesophageal reflux disease [Unknown]
  - Post thrombotic syndrome [Unknown]
  - White blood cell count increased [Recovering/Resolving]
  - Flatulence [Unknown]
  - Myalgia [Not Recovered/Not Resolved]
  - Platelet count decreased [Not Recovered/Not Resolved]
  - Neutrophil count decreased [Unknown]
  - Contusion [Not Recovered/Not Resolved]
  - Onychoclasis [Unknown]
